FAERS Safety Report 4424097-8 (Version None)
Quarter: 2004Q3

REPORT INFORMATION
  Report Type: 
  Country: None (occurrence: None)
  Receive Date: 20040809
  Receipt Date: 20040809
  Transmission Date: 20050211
  Serious: Yes (Hospitalization)
  Sender: FDA-Public Use
  Company Number: None

PATIENT
  Age: 84 Year
  Sex: Male
  Weight: 48 kg

DRUGS (4)
  1. ISONIAZID [Suspect]
     Indication: TUBERCULOSIS
     Dosage: PO-DOSES (?)
     Route: 048
     Dates: start: 20040601
  2. RIFAMPIN [Suspect]
  3. ETHAMBUTOL HCL [Suspect]
  4. PYRAZINAMIDE [Suspect]

REACTIONS (3)
  - ANOREXIA [None]
  - ASTHENIA [None]
  - JAUNDICE [None]
